FAERS Safety Report 18131427 (Version 1)
Quarter: 2020Q3

REPORT INFORMATION
  Report Type: Report from Study
  Country: MX (occurrence: MX)
  Receive Date: 20200810
  Receipt Date: 20200810
  Transmission Date: 20201103
  Serious: Yes (Other)
  Sender: FDA-Public Use
  Company Number: MX-JNJFOC-20200806462

PATIENT
  Age: 37 Year
  Sex: Male
  Weight: 62 kg

DRUGS (2)
  1. DARATUMUMAB [Suspect]
     Active Substance: DARATUMUMAB
     Route: 042
     Dates: start: 20200731
  2. DARATUMUMAB [Suspect]
     Active Substance: DARATUMUMAB
     Indication: PLASMA CELL MYELOMA
     Route: 042
     Dates: start: 20200724, end: 20200724

REACTIONS (5)
  - Rhinorrhoea [Unknown]
  - Infusion related reaction [Unknown]
  - Abdominal pain [Unknown]
  - Apnoea [Unknown]
  - Oxygen saturation decreased [Unknown]

NARRATIVE: CASE EVENT DATE: 20200724
